FAERS Safety Report 15687346 (Version 2)
Quarter: 2019Q1

REPORT INFORMATION
  Report Type: Report from Study
  Country: JP (occurrence: JP)
  Receive Date: 20181205
  Receipt Date: 20190311
  Transmission Date: 20190417
  Serious: Yes (Death)
  Sender: FDA-Public Use
  Company Number: JP-BEH-2018097364

PATIENT
  Age: 93 Year
  Sex: Male
  Weight: 47.6 kg

DRUGS (5)
  1. ARTIST [Concomitant]
     Active Substance: CARVEDILOL
     Indication: CARDIAC FAILURE
     Dosage: UNK
     Route: 048
     Dates: end: 20180107
  2. BERIPLEX P/N [Suspect]
     Active Substance: COAGULATION FACTOR IX HUMAN\COAGULATION FACTOR VII HUMAN\COAGULATION FACTOR X HUMAN\PROTEIN C\PROTEIN S HUMAN\PROTHROMBIN
     Indication: HAEMORRHAGE
     Dosage: 2000 IU, UNK
     Route: 042
     Dates: start: 20171211
  3. VONOPRAZAN [Concomitant]
     Active Substance: VONOPRAZAN
     Indication: GASTRODUODENAL ULCER
     Dosage: UNK
     Route: 048
     Dates: end: 20180107
  4. AMLODIPINE [Concomitant]
     Active Substance: AMLODIPINE BESYLATE
     Indication: HYPERTENSION
     Dosage: UNK
     Route: 048
     Dates: end: 20180107
  5. WARFARIN [Concomitant]
     Active Substance: WARFARIN
     Dosage: 1.75 MG, UNK
     Route: 048
     Dates: end: 20171211

REACTIONS (1)
  - Marasmus [Fatal]
